FAERS Safety Report 7889403-0 (Version None)
Quarter: 2011Q4

REPORT INFORMATION
  Report Type: 
  Country: None (occurrence: None)
  Receive Date: 20111103
  Receipt Date: 20111019
  Transmission Date: 20120403
  Serious: Yes (Other)
  Sender: FDA-Public Use
  Company Number: US-ENDO PHARMACEUTICALS INC.-TRIP20110099

PATIENT
  Sex: Female

DRUGS (1)
  1. NORGESTIMATE/ETHINYL ESTRADIOL [Suspect]
     Indication: CONTRACEPTION
     Dosage: 1 TABLET
     Route: 048
     Dates: start: 20110701, end: 20110901

REACTIONS (7)
  - ABORTION SPONTANEOUS [None]
  - FATIGUE [None]
  - DRUG INEFFECTIVE [None]
  - MOOD SWINGS [None]
  - PREGNANCY ON ORAL CONTRACEPTIVE [None]
  - HUMAN CHORIONIC GONADOTROPIN INCREASED [None]
  - MALAISE [None]
